FAERS Safety Report 7581936-X (Version None)
Quarter: 2011Q2

REPORT INFORMATION
  Report Type: 
  Country: None (occurrence: None)
  Receive Date: 20110629
  Receipt Date: 20110627
  Transmission Date: 20111010
  Serious: Yes (Death, Hospitalization, Other)
  Sender: FDA-Public Use
  Company Number: US-CELGENEUS-163-21880-11063638

PATIENT
  Sex: Male

DRUGS (4)
  1. REVLIMID [Suspect]
     Dosage: 50 MILLIGRAM
     Route: 048
     Dates: start: 20110616, end: 20110619
  2. HYDREA [Concomitant]
     Indication: ACUTE MYELOID LEUKAEMIA
     Route: 065
  3. REVLIMID [Suspect]
     Dosage: 25 MILLIGRAM
     Route: 048
     Dates: start: 20110621, end: 20110622
  4. HYDREA [Concomitant]

REACTIONS (5)
  - INTERNATIONAL NORMALISED RATIO INCREASED [None]
  - FATIGUE [None]
  - DEATH [None]
  - METABOLIC ACIDOSIS [None]
  - PANCYTOPENIA [None]
